FAERS Safety Report 7293974-5 (Version None)
Quarter: 2011Q1

REPORT INFORMATION
  Report Type: 
  Country: None (occurrence: None)
  Receive Date: 20110215
  Receipt Date: 20110208
  Transmission Date: 20110831
  Serious: Yes (Other)
  Sender: FDA-Public Use
  Company Number: CHPA2011US02535

PATIENT
  Age: 55 Year
  Sex: Female

DRUGS (4)
  1. VICODIN [Concomitant]
     Indication: HEADACHE
     Dosage: 1-2 TIMES PER DAY
  2. MORPHINE [Concomitant]
     Indication: ARTHRITIS
     Dosage: 1-3 TIMES PER DAY
     Route: 048
  3. STADOL [Concomitant]
     Indication: MIGRAINE
     Dosage: UNK, QHS
     Route: 045
  4. EXCEDRIN (MIGRAINE) [Suspect]
     Indication: HEADACHE
     Dosage: 2 CAPLETS, BID
     Route: 048
     Dates: start: 19860101

REACTIONS (4)
  - HEPATITIS B [None]
  - HEPATITIS C [None]
  - INTENTIONAL DRUG MISUSE [None]
  - OVERDOSE [None]
